FAERS Safety Report 5093612-6 (Version None)
Quarter: 2006Q3

REPORT INFORMATION
  Report Type: 
  Country: None (occurrence: None)
  Receive Date: 20060829
  Receipt Date: 20060811
  Transmission Date: 20061208
  Serious: Yes (Other)
  Sender: FDA-Public Use
  Company Number: PAR_0769_2006

PATIENT
  Age: 58 Year
  Sex: Female

DRUGS (1)
  1. HYDRALAZINE HYDROCHLORIDE [Suspect]
     Indication: HYPERTENSION
     Dosage: 100 MG QDAY

REACTIONS (1)
  - INTERSTITIAL LUNG DISEASE [None]
